FAERS Safety Report 25106068 (Version 3)
Quarter: 2025Q3

REPORT INFORMATION
  Report Type: Spontaneous
  Country: EU (occurrence: EU)
  Receive Date: 20250321
  Receipt Date: 20250702
  Transmission Date: 20251021
  Serious: Yes (Hospitalization)
  Sender: PFIZER
  Company Number: EU-ROCHE-10000225182

PATIENT
  Age: 42 Year
  Sex: Female
  Weight: 68 kg

DRUGS (5)
  1. CARBOPLATIN [Suspect]
     Active Substance: CARBOPLATIN
     Indication: Triple negative breast cancer
     Route: 042
     Dates: start: 20241119
  2. ATEZOLIZUMAB [Suspect]
     Active Substance: ATEZOLIZUMAB
     Indication: Triple negative breast cancer
     Route: 042
     Dates: start: 20241119, end: 20250225
  3. TIRAGOLUMAB [Suspect]
     Active Substance: TIRAGOLUMAB
     Indication: Triple negative breast cancer
     Route: 042
     Dates: start: 20241119, end: 20250225
  4. PACLITAXEL [Suspect]
     Active Substance: PACLITAXEL
     Indication: Triple negative breast cancer
     Route: 042
     Dates: start: 20241119
  5. PACLITAXEL [Suspect]
     Active Substance: PACLITAXEL
     Dates: start: 20250218, end: 20250218

REACTIONS (1)
  - Immune-mediated myocarditis [Recovered/Resolved]

NARRATIVE: CASE EVENT DATE: 20250226
